FAERS Safety Report 6688063-4 (Version None)
Quarter: 2010Q2

REPORT INFORMATION
  Report Type: 
  Country: None (occurrence: None)
  Receive Date: 20100420
  Receipt Date: 20100414
  Transmission Date: 20101027
  Serious: Yes (Death, Other)
  Sender: FDA-Public Use
  Company Number: PHHY2010JP09723

PATIENT
  Sex: Male
  Weight: 58 kg

DRUGS (10)
  1. DIOVAN [Suspect]
     Dosage: 40 MG ONCE DAILY
     Route: 048
     Dates: start: 20080108
  2. DIOVAN [Suspect]
     Dosage: 80 MG ONCE DAILY
     Route: 048
     Dates: start: 20080122, end: 20080204
  3. DIOVAN [Suspect]
     Dosage: 160 MG ONCE DAILY
     Route: 048
     Dates: start: 20080205, end: 20090407
  4. TENORMIN [Concomitant]
     Indication: HYPERTENSION
     Dosage: UNK
     Route: 048
     Dates: start: 20080812, end: 20090407
  5. LASIX [Concomitant]
     Indication: HYPERTENSION
     Dosage: 40 MG
     Route: 048
     Dates: start: 20080108
  6. LASIX [Concomitant]
     Dosage: 80 MG
     Route: 048
     Dates: end: 20090407
  7. AMLODIN [Concomitant]
     Indication: HYPERTENSION
     Dosage: UNK
     Route: 048
     Dates: start: 20080108, end: 20080122
  8. PRECIPITATED CALCIUM CARBONATE [Concomitant]
     Dosage: 3 G
     Route: 048
     Dates: start: 20080108
  9. PRECIPITATED CALCIUM CARBONATE [Concomitant]
     Dosage: 2.4 G
     Route: 048
     Dates: end: 20090407
  10. TAKEPRON [Concomitant]
     Dosage: UNK
     Route: 048
     Dates: start: 20080610, end: 20090407

REACTIONS (4)
  - BLOOD PRESSURE INCREASED [None]
  - RENAL FAILURE CHRONIC [None]
  - RUPTURED CEREBRAL ANEURYSM [None]
  - SUBARACHNOID HAEMORRHAGE [None]
